FAERS Safety Report 7432115-8 (Version None)
Quarter: 2011Q2

REPORT INFORMATION
  Report Type: 
  Country: None (occurrence: None)
  Receive Date: 20110422
  Receipt Date: 20110405
  Transmission Date: 20111010
  Serious: No
  Sender: FDA-Public Use
  Company Number: US-B.I. PHARMACEUTICALS,INC./RIDGEFIELD-2011-BP-10115BP

PATIENT
  Sex: Female

DRUGS (10)
  1. FUROSEMIDE [Concomitant]
     Indication: DIURETIC THERAPY
     Dosage: 30 MG
  2. NORVASC [Concomitant]
     Indication: HYPERTENSION
  3. BENAZEPRIL HYDROCHLORIDE [Concomitant]
     Indication: HYPERTENSION
  4. PRADAXA [Suspect]
     Indication: ATRIAL FIBRILLATION
     Dosage: 300 MG
     Route: 048
     Dates: start: 20110302
  5. DIGOXIN [Concomitant]
     Indication: CARDIAC DISORDER
  6. METOPROLOL [Concomitant]
     Indication: HYPERTENSION
  7. METOPROLOL [Concomitant]
     Indication: ATRIAL FIBRILLATION
  8. SIMVASTATIN [Concomitant]
     Indication: BLOOD CHOLESTEROL INCREASED
  9. PROZAC [Concomitant]
     Indication: DEPRESSION
     Dosage: 40 MG
  10. HYDROCODONE BITARTRATE [Concomitant]
     Indication: ARTHRITIS

REACTIONS (8)
  - NAUSEA [None]
  - HAEMATOCHEZIA [None]
  - DECREASED APPETITE [None]
  - DIZZINESS [None]
  - BALANCE DISORDER [None]
  - DIARRHOEA [None]
  - ANORECTAL DISCOMFORT [None]
  - VAGINAL HAEMORRHAGE [None]
